FAERS Safety Report 6758186-X (Version None)
Quarter: 2010Q2

REPORT INFORMATION
  Report Type: 
  Country: None (occurrence: None)
  Receive Date: 20100607
  Receipt Date: 20100603
  Transmission Date: 20101027
  Serious: Yes (Hospitalization)
  Sender: FDA-Public Use
  Company Number: US-GILEAD-2010-0028536

PATIENT
  Sex: Female
  Weight: 93.978 kg

DRUGS (14)
  1. LETAIRIS [Suspect]
     Indication: PULMONARY ARTERIAL HYPERTENSION
     Route: 048
     Dates: start: 20090722
  2. REVATIO [Concomitant]
  3. ASPIRIN [Concomitant]
  4. PROAIR HFA [Concomitant]
  5. SINGULAIR [Concomitant]
  6. FLONASE [Concomitant]
  7. PREDNISONE [Concomitant]
  8. PAROXETINE HCL [Concomitant]
  9. RANITIDINE [Concomitant]
  10. NEXIUM [Concomitant]
  11. HYDROXYCHLOROQUINE SULFATE [Concomitant]
  12. CELLCEPT [Concomitant]
  13. CELEBREX [Concomitant]
  14. MULTI-VITAMIN [Concomitant]

REACTIONS (2)
  - OXYGEN SATURATION DECREASED [None]
  - PNEUMONIA [None]
